FAERS Safety Report 21752143 (Version 1)
Quarter: 2022Q4

REPORT INFORMATION
  Report Type: Spontaneous
  Country: US (occurrence: US)
  Receive Date: 20221220
  Receipt Date: 20221220
  Transmission Date: 20230112
  Serious: No
  Sender: FDA-Public Use
  Company Number: US-PADAGIS-2022PAD01133

PATIENT

DRUGS (4)
  1. CYCLOSPORINE [Suspect]
     Active Substance: CYCLOSPORINE
     Indication: Drug eruption
     Dosage: LESS THAN 6 WEEKS
     Route: 065
  2. ACITRETIN [Suspect]
     Active Substance: ACITRETIN
     Indication: Drug eruption
     Dosage: LESS THAN 6 MONTHS
     Route: 065
  3. DUPILUMAB [Suspect]
     Active Substance: DUPILUMAB
     Indication: Drug eruption
     Dosage: LESS THAN 6 WEEKS
     Route: 065
  4. METHOTREXATE [Suspect]
     Active Substance: METHOTREXATE
     Indication: Drug eruption
     Dosage: LESS THAN 6 WEEKS
     Route: 065

REACTIONS (1)
  - Drug ineffective for unapproved indication [Unknown]
